FAERS Safety Report 5475912-0 (Version None)
Quarter: 2007Q4

REPORT INFORMATION
  Report Type: 
  Country: None (occurrence: None)
  Receive Date: 20071003
  Receipt Date: 20071001
  Transmission Date: 20080405
  Serious: Yes (Death, Hospitalization)
  Sender: FDA-Public Use
  Company Number: FR-ASTRAZENECA-2007CG01156

PATIENT
  Age: 471 Month
  Sex: Female

DRUGS (6)
  1. HYTACAND [Suspect]
     Indication: HYPERTENSION
     Route: 048
     Dates: start: 20070201, end: 20070613
  2. TRUVADA [Suspect]
     Indication: HIV INFECTION
     Dosage: 200 + 245 MG DAILY
     Route: 048
     Dates: start: 20070101, end: 20070613
  3. SUSTIVA [Suspect]
     Indication: HIV INFECTION
     Route: 048
     Dates: start: 20070101, end: 20070613
  4. RULID [Suspect]
     Indication: CHLAMYDIAL INFECTION
     Route: 048
     Dates: start: 20070501, end: 20070515
  5. INIPOMP [Concomitant]
     Indication: GASTROINTESTINAL DISORDER
     Dates: start: 20070515, end: 20070601
  6. BACTRIM [Concomitant]
     Indication: PROPHYLAXIS
     Dates: start: 20070101, end: 20070401

REACTIONS (1)
  - HEPATITIS FULMINANT [None]
